FAERS Safety Report 4313470-4 (Version None)
Quarter: 2004Q1

REPORT INFORMATION
  Report Type: 
  Country: None (occurrence: None)
  Receive Date: 20040308
  Receipt Date: 20040116
  Transmission Date: 20041129
  Serious: Yes (Hospitalization)
  Sender: FDA-Public Use
  Company Number: GB-ROCHE-356328

PATIENT
  Age: 61 Year
  Sex: Male
  Weight: 88.5 kg

DRUGS (8)
  1. CAPECITABINE [Suspect]
     Dosage: GIVEN FOR 21 DAYS, FOLLOWED BY 7 DAYS REST. ONE DOSE GIVEN AM AND ONE DOSE GIVEN PM.
     Route: 048
     Dates: start: 20031106
  2. GEMCITABINE [Suspect]
     Dosage: IV INFUSION OVER 30 MIN.  ONCE A WEEK FOR 7 WEEKS FOLLOWED BY 1 WEEKS REST.
     Route: 042
     Dates: start: 20031106
  3. CREON [Concomitant]
     Route: 048
     Dates: start: 20031015
  4. ADALAT [Concomitant]
     Indication: HYPERTENSION
     Route: 048
     Dates: start: 19940615
  5. ATENOLOL [Concomitant]
     Indication: HYPERTENSION
     Route: 048
     Dates: start: 19940615
  6. FLOMAX [Concomitant]
     Route: 048
     Dates: start: 20031009
  7. INSULIN [Concomitant]
     Route: 058
     Dates: start: 20031120
  8. ONDANSETRON HCL [Concomitant]
     Dosage: STAT.
     Route: 042
     Dates: start: 20040130, end: 20040130

REACTIONS (6)
  - BILIARY DILATATION [None]
  - CHILLS [None]
  - CHROMATURIA [None]
  - FAECES PALE [None]
  - JAUNDICE [None]
  - PYREXIA [None]
